FAERS Safety Report 8322717-9 (Version None)
Quarter: 2012Q2

REPORT INFORMATION
  Report Type: 
  Country: None (occurrence: None)
  Receive Date: 20120430
  Receipt Date: 20120420
  Transmission Date: 20120825
  Serious: Yes (Other)
  Sender: FDA-Public Use
  Company Number: GB-GENZYME-FABR-1002471

PATIENT
  Sex: Female
  Weight: 85.5 kg

DRUGS (1)
  1. FABRAZYME [Suspect]
     Indication: FABRY'S DISEASE
     Dosage: 70 MG, Q2W
     Route: 042

REACTIONS (2)
  - SENSORY DISTURBANCE [None]
  - INFUSION RELATED REACTION [None]
